FAERS Safety Report 5684671-8 (Version None)
Quarter: 2008Q1

REPORT INFORMATION
  Report Type: 
  Country: None (occurrence: None)
  Receive Date: 20080328
  Receipt Date: 20070615
  Transmission Date: 20080703
  Serious: Yes (Life-Threatening)
  Sender: FDA-Public Use
  Company Number: US-BRISTOL-MYERS SQUIBB COMPANY-13794441

PATIENT
  Age: 57 Year
  Sex: Female

DRUGS (4)
  1. ERBITUX [Suspect]
     Indication: COLORECTAL CANCER
     Route: 042
     Dates: start: 20070522, end: 20070522
  2. DECADRON [Concomitant]
     Indication: PREMEDICATION
     Dates: start: 20070522
  3. BENADRYL [Concomitant]
     Indication: PREMEDICATION
     Dates: start: 20070522
  4. TYLENOL (CAPLET) [Concomitant]
     Indication: PREMEDICATION
     Dates: start: 20070522

REACTIONS (5)
  - BLOOD PRESSURE DECREASED [None]
  - CONVULSION [None]
  - HEART RATE DECREASED [None]
  - INFUSION RELATED REACTION [None]
  - RESUSCITATION [None]
